FAERS Safety Report 4330848-3 (Version None)
Quarter: 2004Q1

REPORT INFORMATION
  Report Type: 
  Country: None (occurrence: None)
  Receive Date: 20040331
  Receipt Date: 20040317
  Transmission Date: 20041129
  Serious: Yes (Other)
  Sender: FDA-Public Use
  Company Number: US070032

PATIENT
  Age: 66 Year
  Sex: Female
  Weight: 57.7 kg

DRUGS (9)
  1. ENBREL [Suspect]
     Indication: RHEUMATOID ARTHRITIS
     Dosage: 25 MG, 2 IN 1 WEEKS,SC
     Route: 058
     Dates: start: 20021106, end: 20031218
  2. CYCLOSPORINE [Suspect]
     Indication: RHEUMATOID ARTHRITIS
     Dosage: 100 MG, 1 IN 1 DAYS, PO
     Route: 048
     Dates: start: 20000512, end: 20031218
  3. METHOTREXATE [Suspect]
     Dosage: WEEKS
     Dates: start: 19950801, end: 20000901
  4. HYDROXYCHLOROQUINE SULFATE [Concomitant]
  5. LEVOTHYROXINE SODIUM [Concomitant]
  6. FLUTICASONE PROPIONATE [Concomitant]
  7. ALBUTEROL SULFATE [Concomitant]
  8. SALMETEROL CONJUGATED [Concomitant]
  9. ESOMEPRAZOLE MAGNESIUM [Concomitant]

REACTIONS (5)
  - BRONCHIECTASIS [None]
  - CHRONIC OBSTRUCTIVE AIRWAYS DISEASE EXACERBATED [None]
  - HYPOXIA [None]
  - LUNG NEOPLASM [None]
  - RHEUMATOID LUNG [None]
